FAERS Safety Report 8956966 (Version 1)
Quarter: 2020Q3

REPORT INFORMATION
  Report Type: Report from Study
  Country: US (occurrence: US)
  Receive Date: 20121210
  Receipt Date: 20121210
  Transmission Date: 20201105
  Serious: Yes (Hospitalization)
  Sender: FDA-Public Use
  Company Number: US-ROCHE-1104023

PATIENT
  Age: 42 Year
  Sex: Male
  Weight: 99.7 kg

DRUGS (14)
  1. LANTUS [Concomitant]
     Active Substance: INSULIN GLARGINE
     Route: 058
     Dates: start: 2011
  2. PROTONIX [Concomitant]
     Active Substance: PANTOPRAZOLE SODIUM
     Indication: GASTROINTESTINAL HAEMORRHAGE
     Route: 065
     Dates: start: 20120821, end: 20120824
  3. ONARTUZUMAB. [Suspect]
     Active Substance: ONARTUZUMAB
     Indication: GLIOBLASTOMA
     Dosage: LAST DOSE PRIOR TO SAE: 09/AUG/2012 ? ALSO LAST DOSE.
     Route: 042
     Dates: start: 20120809
  4. INSULIN REGULAR [Concomitant]
     Active Substance: INSULIN NOS
  5. LISINOPRIL. [Concomitant]
     Active Substance: LISINOPRIL
     Indication: HYPERTENSION
     Route: 065
     Dates: start: 2011
  6. JANUVIA [Concomitant]
     Active Substance: SITAGLIPTIN PHOSPHATE
     Indication: DIABETES MELLITUS
     Route: 065
     Dates: start: 2011
  7. ZOFRAN [Concomitant]
     Active Substance: ONDANSETRON HYDROCHLORIDE
     Indication: VOMITING
     Route: 065
     Dates: start: 20120823
  8. D50W [Concomitant]
  9. NPH INSULIN [Concomitant]
     Active Substance: INSULIN BEEF
  10. INSULIN HUMAN LISPRO [Concomitant]
     Route: 065
     Dates: start: 20120817
  11. THORAZINE (UNITED STATES) [Concomitant]
     Indication: GASTROINTESTINAL HAEMORRHAGE
     Route: 065
     Dates: start: 20120823, end: 20120824
  12. PLACEBO [Suspect]
     Active Substance: UNSPECIFIED INGREDIENT
     Indication: GLIOBLASTOMA
     Dosage: LAST DOSE PRIOR TO SAE: 09/AUG/2012 ? ALSO LAST DOSE.
     Route: 042
     Dates: start: 20120809
  13. PREDNISOLONE. [Suspect]
     Active Substance: PREDNISOLONE
     Indication: PRODUCT USED FOR UNKNOWN INDICATION
     Route: 050
  14. GABAPENTIN. [Concomitant]
     Active Substance: GABAPENTIN
     Indication: DIABETIC NEUROPATHY
     Route: 065
     Dates: start: 2011, end: 20120820

REACTIONS (2)
  - Brain oedema [Not Recovered/Not Resolved]
  - Upper gastrointestinal haemorrhage [Recovered/Resolved]

NARRATIVE: CASE EVENT DATE: 20120817
